FAERS Safety Report 4853401-1 (Version None)
Quarter: 2005Q4

REPORT INFORMATION
  Report Type: 
  Country: None (occurrence: None)
  Receive Date: 20051214
  Receipt Date: 20051130
  Transmission Date: 20060501
  Serious: Yes (Other)
  Sender: FDA-Public Use
  Company Number: US-MERCK-0511USA04559

PATIENT
  Age: 29 Year
  Sex: Female

DRUGS (7)
  1. SINGULAIR [Suspect]
     Indication: ASTHMA
     Route: 048
  2. ADVAIR DISKUS 250/50 [Suspect]
     Indication: ASTHMA
     Route: 065
  3. IPRATROPIUM BROMIDE [Suspect]
     Indication: ASTHMA
     Route: 065
  4. ALBUTEROL [Suspect]
     Indication: ASTHMA
     Route: 065
  5. LEXAPRO [Suspect]
     Route: 048
     Dates: start: 20050701
  6. LEXAPRO [Suspect]
     Route: 048
     Dates: start: 20040101
  7. LEXAPRO [Suspect]
     Route: 048
     Dates: end: 20050701

REACTIONS (5)
  - ABNORMAL DREAMS [None]
  - ASTHMA [None]
  - DRUG INTERACTION [None]
  - PANIC REACTION [None]
  - RESPIRATORY TRACT INFECTION [None]
